FAERS Safety Report 17884875 (Version 3)
Quarter: 2020Q3

REPORT INFORMATION
  Report Type: Spontaneous
  Country: US (occurrence: US)
  Receive Date: 20200611
  Receipt Date: 20200930
  Transmission Date: 20201103
  Serious: No
  Sender: FDA-Public Use
  Company Number: US-VERTEX PHARMACEUTICALS-2020-012318

PATIENT
  Sex: Female
  Weight: 65 kg

DRUGS (28)
  1. TRIKAFTA [Suspect]
     Active Substance: ELEXACAFTOR\IVACAFTOR\TEZACAFTOR
     Indication: CYSTIC FIBROSIS
     Dosage: 2 TABS(100 MG ELEXACAFTOR/ 50 MG TEZACAFTOR/ 75 MG IVACAFTOR) IN AM; 1 TAB(150MG IVACAFTOR) IN PM
     Route: 048
     Dates: start: 20191126, end: 2020
  2. PULMOZYME [Concomitant]
     Active Substance: DORNASE ALFA
     Dosage: 2.5 MG, QD
  3. SINGULAIR [Concomitant]
     Active Substance: MONTELUKAST SODIUM
     Dosage: 10 MG, QD
  4. MINOCYCLINE [Concomitant]
     Active Substance: MINOCYCLINE HYDROCHLORIDE
  5. MONTELUKAST [Concomitant]
     Active Substance: MONTELUKAST SODIUM
  6. INSULIN ASPART [Concomitant]
     Active Substance: INSULIN ASPART
  7. TOBI PODHALER [Concomitant]
     Active Substance: TOBRAMYCIN
     Dosage: 112 MICROGRAM, BID
  8. ZITHROMAX [Concomitant]
     Active Substance: AZITHROMYCIN DIHYDRATE
     Dosage: 500 MG
  9. CREON [Concomitant]
     Active Substance: PANCRELIPASE AMYLASE\PANCRELIPASE LIPASE\PANCRELIPASE PROTEASE
     Dosage: 24 K
  10. PRILOSEC [Concomitant]
     Active Substance: OMEPRAZOLE MAGNESIUM
     Dosage: 40 MG, QD
  11. VITAMIN B [Concomitant]
     Active Substance: VITAMIN B
     Dosage: UNK
  12. METHYLPRED [Concomitant]
     Active Substance: METHYLPREDNISOLONE
  13. CLARITIN [CLARITHROMYCIN] [Concomitant]
     Active Substance: CLARITHROMYCIN
  14. ADEK [Concomitant]
     Dosage: UNK
     Route: 048
  15. LEVOFLOXACIN. [Concomitant]
     Active Substance: LEVOFLOXACIN
  16. SYMBICORT [Concomitant]
     Active Substance: BUDESONIDE\FORMOTEROL FUMARATE DIHYDRATE
     Dosage: UNK, BID
     Route: 055
  17. NASACORT [Concomitant]
     Active Substance: TRIAMCINOLONE ACETONIDE
     Dosage: UNK
     Route: 045
  18. FLUCONAZOLE. [Concomitant]
     Active Substance: FLUCONAZOLE
  19. MOMETASONE [Concomitant]
     Active Substance: MOMETASONE
  20. TRIKAFTA [Suspect]
     Active Substance: ELEXACAFTOR\IVACAFTOR\TEZACAFTOR
     Dosage: DECREASED TO TWICE WEEKLY
     Route: 048
     Dates: start: 2020, end: 2020
  21. AZITHROMYCIN ANHYDROUS. [Concomitant]
     Active Substance: AZITHROMYCIN ANHYDROUS
     Dosage: 500 MG 3X/WEEK
     Route: 048
  22. NASONEX [Concomitant]
     Active Substance: MOMETASONE FUROATE
     Dosage: 2 UNK, QD
  23. SALINE [SODIUM CHLORIDE] [Concomitant]
     Active Substance: SODIUM CHLORIDE
     Dosage: UNK, BID
  24. VENTOLINE [SALBUTAMOL] [Concomitant]
     Active Substance: ALBUTEROL SULFATE
  25. NOVOLOG [Concomitant]
     Active Substance: INSULIN ASPART
     Dosage: UNK
  26. ALBUTEROL [SALBUTAMOL] [Concomitant]
     Active Substance: ALBUTEROL
     Dosage: UNK
     Route: 055
  27. TRESIBA [Concomitant]
     Active Substance: INSULIN DEGLUDEC
     Dosage: 20 UNITS/ML, QD
  28. AMOXYCLAV [AMOXICILLIN SODIUM;CLAVULANATE POTASSIUM] [Concomitant]

REACTIONS (4)
  - Weight increased [Unknown]
  - Skin burning sensation [Unknown]
  - Oedema [Unknown]
  - Drug interaction [Unknown]

NARRATIVE: CASE EVENT DATE: 2019
